FAERS Safety Report 4790163-0 (Version None)
Quarter: 2005Q4

REPORT INFORMATION
  Report Type: 
  Country: None (occurrence: None)
  Receive Date: 20051005
  Receipt Date: 20051005
  Transmission Date: 20060501
  Serious: Yes (Hospitalization)
  Sender: FDA-Public Use
  Company Number: None

PATIENT
  Age: 56 Year
  Sex: Female

DRUGS (6)
  1. OLANZAPINE [Suspect]
     Indication: BIPOLAR DISORDER
     Dosage: 200 MG PO QD
     Route: 048
     Dates: start: 20040908, end: 20040918
  2. CLONAZEPAM [Concomitant]
  3. LORAZEPAM [Concomitant]
  4. VALPROIC ACID [Concomitant]
  5. LEVOTHYROXINE [Concomitant]
  6. SERTRALINE HCL [Concomitant]

REACTIONS (7)
  - AGITATION [None]
  - AUTISM [None]
  - CATATONIA [None]
  - COMMUNICATION DISORDER [None]
  - PARANOIA [None]
  - SOCIAL AVOIDANT BEHAVIOUR [None]
  - STEREOTYPY [None]
